FAERS Safety Report 5342674-7 (Version None)
Quarter: 2007Q2

REPORT INFORMATION
  Report Type: 
  Country: None (occurrence: None)
  Receive Date: 20070601
  Receipt Date: 20070521
  Transmission Date: 20071010
  Serious: Yes (Other)
  Sender: FDA-Public Use
  Company Number: US-PFIZER INC-2007040789

PATIENT
  Sex: Male
  Weight: 108.9 kg

DRUGS (6)
  1. VIAGRA [Suspect]
     Indication: ERECTILE DYSFUNCTION
     Route: 048
  2. LEXAPRO [Concomitant]
  3. LIPITOR [Concomitant]
  4. PRILOSEC [Concomitant]
  5. FLONASE [Concomitant]
  6. SITAGLIPTIN [Concomitant]

REACTIONS (1)
  - MIGRAINE WITH AURA [None]
